FAERS Safety Report 24977405 (Version 2)
Quarter: 2025Q3

REPORT INFORMATION
  Report Type: Spontaneous
  Country: EU (occurrence: EU)
  Receive Date: 20250217
  Receipt Date: 20250910
  Transmission Date: 20251020
  Serious: Yes (Other)
  Sender: MYLAN
  Company Number: EU-ZENTIVA-2025-ZT-027439

PATIENT
  Sex: Male

DRUGS (5)
  1. ATORVASTATIN [Suspect]
     Active Substance: ATORVASTATIN
     Indication: Dyslipidaemia
  2. AMLODIPINE\PERINDOPRIL [Suspect]
     Active Substance: AMLODIPINE\PERINDOPRIL
     Indication: Product used for unknown indication
  3. BISOPROLOL [Concomitant]
     Active Substance: BISOPROLOL
  4. ASPIRIN [Concomitant]
     Active Substance: ASPIRIN
  5. INDAPAMIDE [Concomitant]
     Active Substance: INDAPAMIDE

REACTIONS (6)
  - Cerebrovascular accident [Recovered/Resolved with Sequelae]
  - Carotid artery occlusion [Recovered/Resolved with Sequelae]
  - Atherosclerotic plaque rupture [Recovered/Resolved with Sequelae]
  - Cerebral artery embolism [Recovered/Resolved with Sequelae]
  - Product dispensing error [Unknown]
  - Treatment noncompliance [Unknown]
